FAERS Safety Report 15980578 (Version 1)
Quarter: 2019Q1

REPORT INFORMATION
  Report Type: Spontaneous
  Country: CH (occurrence: CH)
  Receive Date: 20190219
  Receipt Date: 20190219
  Transmission Date: 20190418
  Serious: Yes (Hospitalization, Other)
  Sender: FDA-Public Use
  Company Number: IND-CH-009507513-1902CHE004312

PATIENT
  Age: 76 Year
  Sex: Male

DRUGS (9)
  1. TAMSULOSIN HYDROCHLORIDE. [Concomitant]
     Active Substance: TAMSULOSIN HYDROCHLORIDE
     Dosage: 0.4 MILLIGRAM, QD
     Route: 048
  2. ENALAPRIL MALEATE (+) HYDROCHLOROTHIAZIDE [Concomitant]
     Active Substance: ENALAPRIL MALEATE\HYDROCHLOROTHIAZIDE
     Dosage: 1 DOSAGE FORM, QD
     Route: 048
  3. SYMBICORT [Concomitant]
     Active Substance: BUDESONIDE\FORMOTEROL FUMARATE DIHYDRATE
     Dosage: 1 DOSAGE FORM, Q12H
     Route: 055
  4. TEBOKAN [Concomitant]
     Active Substance: GINKGO
     Dosage: 120 MILLIGRAM, QD
     Route: 048
  5. PREGABALIN. [Concomitant]
     Active Substance: PREGABALIN
     Dosage: 100 MILLIGRAM, Q12H
     Route: 048
  6. METOPROLOL. [Concomitant]
     Active Substance: METOPROLOL
     Dosage: 50 MILLIGRAM, QD
     Route: 048
     Dates: end: 201809
  7. ATORVASTATIN [Concomitant]
     Active Substance: ATORVASTATIN
     Dosage: 20 MILLIGRAM, QD
     Route: 048
  8. ARCOXIA [Suspect]
     Active Substance: ETORICOXIB
     Indication: ANALGESIC THERAPY
     Dosage: 60 MILLIGRAM, Q12H
     Route: 048
     Dates: start: 20180810, end: 20180910
  9. METOPROLOL. [Concomitant]
     Active Substance: METOPROLOL
     Dosage: 50 MILLIGRAM, Q12H
     Route: 048
     Dates: start: 201809

REACTIONS (4)
  - Overdose [Recovered/Resolved]
  - Hypertension [Recovered/Resolved]
  - Oedema [Recovered/Resolved]
  - Cardiac failure [Recovered/Resolved]

NARRATIVE: CASE EVENT DATE: 20180911
